FAERS Safety Report 9745400 (Version 1)
Quarter: 2013Q4

REPORT INFORMATION
  Report Type: Spontaneous
  Country: US (occurrence: None)
  Receive Date: 20131204
  Receipt Date: 20131204
  Transmission Date: 20140711
  Serious: Yes (Hospitalization)
  Sender: FDA-Public Use
  Company Number: UTC-041102

PATIENT
  Age: 47 Year
  Sex: Female
  Weight: 105.9 kg

DRUGS (6)
  1. REMODULIN [Suspect]
     Indication: COR PULMONALE CHRONIC
     Dosage: 83.52 UG/KG (0.058 UG/KG, 1 IN 1 MIN), SUBCUTANEOUS
     Route: 058
     Dates: start: 20120119
  2. COUMADIN [Suspect]
     Indication: PRODUCT USED FOR UNKNOWN INDICATION
     Dates: end: 201311
  3. LETAIRIS [Suspect]
     Indication: PRODUCT USED FOR UNKNOWN INDICATION
     Dosage: 10 MG (10 MG, 1 IN 1 D)
     Dates: start: 20121126
  4. ADCIRCA (TADALAFIL) (UNKNOWN) [Concomitant]
  5. FUROSEMIDE (UNKNOWN) [Concomitant]
  6. SPIRONOLACTONE (UNKNOWN) [Concomitant]

REACTIONS (1)
  - Infusion site haematoma [None]
